FAERS Safety Report 4527153-9 (Version None)
Quarter: 2004Q4

REPORT INFORMATION
  Report Type: 
  Country: None (occurrence: None)
  Receive Date: 20041126
  Receipt Date: 20040831
  Transmission Date: 20050328
  Serious: Yes (Other)
  Sender: FDA-Public Use
  Company Number: 2004231353US

PATIENT
  Age: 71 Year
  Sex: Female

DRUGS (4)
  1. ZYVOX [Suspect]
     Indication: PYELONEPHRITIS
     Dosage: 600 MG, BID
     Dates: start: 20040101, end: 20040101
  2. ZYVOX [Suspect]
     Indication: PYELONEPHRITIS
     Dosage: 600 MG, BID
     Dates: start: 20040801, end: 20040828
  3. SYNTHROID [Concomitant]
  4. CIPRO [Concomitant]

REACTIONS (1)
  - NEUROPATHY PERIPHERAL [None]
